FAERS Safety Report 10514889 (Version 3)
Quarter: 2014Q4

REPORT INFORMATION
  Report Type: Spontaneous
  Country: US (occurrence: US)
  Receive Date: 20141013
  Receipt Date: 20141113
  Transmission Date: 20150528
  Serious: Yes (Death, Hospitalization)
  Sender: FDA-Public Use
  Company Number: US-ACTELION-A-US2014-106282

PATIENT
  Age: 84 Year
  Sex: Female

DRUGS (3)
  1. TYVASO [Concomitant]
     Active Substance: TREPROSTINIL
  2. ADCIRCA [Concomitant]
     Active Substance: TADALAFIL
  3. TRACLEER [Suspect]
     Active Substance: BOSENTAN\BOSENTAN MONOHYDRATE
     Indication: PULMONARY ARTERIAL HYPERTENSION
     Dosage: UNK
     Route: 048
     Dates: start: 20140522, end: 20141015

REACTIONS (5)
  - Cardiac arrest [Fatal]
  - Clavicle fracture [Recovered/Resolved]
  - Fall [Recovered/Resolved]
  - Hip fracture [Fatal]
  - Contusion [Recovered/Resolved]

NARRATIVE: CASE EVENT DATE: 20140926
